FAERS Safety Report 6839913-X (Version None)
Quarter: 2010Q3

REPORT INFORMATION
  Report Type: 
  Country: None (occurrence: None)
  Receive Date: 20100714
  Receipt Date: 20100702
  Transmission Date: 20110219
  Serious: Yes (Death, Hospitalization)
  Sender: FDA-Public Use
  Company Number: BE-WYE-H15999410

PATIENT
  Age: 80 Year
  Sex: Male

DRUGS (4)
  1. PANTOMED [Suspect]
     Indication: GASTROOESOPHAGEAL REFLUX DISEASE
     Route: 048
     Dates: start: 20090501
  2. PANTOMED [Suspect]
     Indication: ULCER
  3. RIVASTIGMINE [Suspect]
     Indication: PARKINSON'S DISEASE
     Dosage: UNKNOWN
  4. RIVASTIGMINE [Suspect]
     Indication: DEMENTIA

REACTIONS (3)
  - DEATH [None]
  - DIARRHOEA [None]
  - VIRAL INFECTION [None]
